FAERS Safety Report 20706196 (Version 1)
Quarter: 2022Q2

REPORT INFORMATION
  Report Type: Spontaneous
  Country: None (occurrence: US)
  Receive Date: 20220413
  Receipt Date: 20220413
  Transmission Date: 20220721
  Serious: No
  Sender: FDA-Public Use
  Company Number: US-Kindeva Drug Delivery L.P.-2127731

PATIENT
  Age: 80 Year
  Sex: Male

DRUGS (1)
  1. ALBUTEROL SULFATE [Suspect]
     Active Substance: ALBUTEROL SULFATE
     Indication: Cough
     Route: 055

REACTIONS (7)
  - Incorrect dose administered by device [Unknown]
  - Off label use [Unknown]
  - Nasopharyngitis [Unknown]
  - Throat irritation [Unknown]
  - Off label use [Unknown]
  - Upper-airway cough syndrome [Unknown]
  - Cough [Unknown]

NARRATIVE: CASE EVENT DATE: 20220113
